FAERS Safety Report 11125706 (Version 5)
Quarter: 2016Q4

REPORT INFORMATION
  Report Type: Report from Study
  Country: KR (occurrence: KR)
  Receive Date: 20150520
  Receipt Date: 20161227
  Transmission Date: 20170206
  Serious: Yes (Hospitalization)
  Sender: FDA-Public Use
  Company Number: PHHY2015KR060633

PATIENT
  Age: 62 Year
  Sex: Male
  Weight: 73 kg

DRUGS (15)
  1. PETHIDINE [Concomitant]
     Active Substance: MEPERIDINE
     Indication: PAIN
     Dosage: 25 MG, UNK
     Route: 065
     Dates: start: 20150428, end: 20150511
  2. IRCODON [Concomitant]
     Indication: MYALGIA
     Dosage: 5 MG, UNK
     Route: 048
     Dates: start: 20121223
  3. ZYLORIC [Concomitant]
     Active Substance: ALLOPURINOL
     Indication: GOUT
     Dosage: 400 MG, UNK
     Route: 048
     Dates: start: 20130401
  4. TASIGNA [Suspect]
     Active Substance: NILOTINIB
     Indication: CHRONIC MYELOID LEUKAEMIA
     Dosage: 600 MG, QD
     Route: 048
     Dates: start: 20150317
  5. CRAVIT [Concomitant]
     Active Substance: LEVOFLOXACIN
     Indication: PROPHYLAXIS
     Dosage: 300 MG, QD
     Route: 065
     Dates: start: 20150428, end: 20150512
  6. SALICYLIC ACID. [Concomitant]
     Active Substance: SALICYLIC ACID
     Indication: DYSHIDROTIC ECZEMA
     Dosage: 10 G, UNK
     Route: 061
     Dates: start: 20150318
  7. NERISONA [Concomitant]
     Active Substance: DIFLUCORTOLONE VALERATE
     Indication: PUSTULAR PSORIASIS
     Dosage: 15 G, UNK
     Route: 061
     Dates: start: 20150318
  8. NORSPAN-M [Concomitant]
     Indication: PAIN
     Dosage: 1 DF, UNK
     Route: 065
     Dates: start: 20150428, end: 20150510
  9. PYRAZINAMIDE. [Concomitant]
     Active Substance: PYRAZINAMIDE
     Indication: PERICARDITIS TUBERCULOUS
     Dosage: 1500 MG, UNK
     Route: 048
     Dates: start: 20141120, end: 20150512
  10. MYAMBUTOL [Concomitant]
     Active Substance: ETHAMBUTOL HYDROCHLORIDE
     Indication: PERICARDITIS TUBERCULOUS
     Dosage: 1200 MG, UNK
     Route: 048
     Dates: start: 20141120, end: 20150512
  11. TARGIN [Concomitant]
     Active Substance: NALOXONE HYDROCHLORIDE\OXYCODONE HYDROCHLORIDE
     Indication: MYALGIA
     Dosage: 2 DF, (NALOXONE HYDROCHLORIDE 10, OXYCODONE HYDROCHLORIDE 5)
     Route: 048
     Dates: start: 20121228
  12. TARGIN [Concomitant]
     Active Substance: NALOXONE HYDROCHLORIDE\OXYCODONE HYDROCHLORIDE
     Dosage: 2 DF, (NALOXONE HYDROCHLORIDE 20, OXYCODONE HYDROCHLORIDE 10)
     Route: 048
     Dates: start: 20121230
  13. HARNAL [Concomitant]
     Active Substance: TAMSULOSIN HYDROCHLORIDE
     Indication: BENIGN PROSTATIC HYPERPLASIA
     Dosage: 0.2 MG, UNK
     Route: 048
     Dates: start: 20121227
  14. ISONICOTINIC [Concomitant]
     Indication: PERICARDITIS TUBERCULOUS
     Dosage: 300 MG, UNK
     Route: 048
     Dates: start: 20141120, end: 20150512
  15. NERISONA [Concomitant]
     Active Substance: DIFLUCORTOLONE VALERATE
     Indication: DYSHIDROTIC ECZEMA

REACTIONS (1)
  - Post procedural complication [Recovered/Resolved]

NARRATIVE: CASE EVENT DATE: 20150428
